FAERS Safety Report 7922812-X (Version None)
Quarter: 2011Q4

REPORT INFORMATION
  Report Type: 
  Country: None (occurrence: None)
  Receive Date: 20111117
  Receipt Date: 20110125
  Transmission Date: 20120403
  Serious: No
  Sender: FDA-Public Use
  Company Number: US-AMGEN-USASP2011004558

PATIENT
  Sex: Female

DRUGS (2)
  1. ENBREL [Suspect]
     Indication: PSORIATIC ARTHROPATHY
     Dates: start: 20070101
  2. REMICADE [Concomitant]

REACTIONS (5)
  - PYREXIA [None]
  - PSORIATIC ARTHROPATHY [None]
  - DRUG INEFFECTIVE [None]
  - FOOT DEFORMITY [None]
  - PSORIASIS [None]
